FAERS Safety Report 9646166 (Version 1)
Quarter: 2013Q4

REPORT INFORMATION
  Report Type: Spontaneous
  Country: US (occurrence: US)
  Receive Date: 20131025
  Receipt Date: 20131025
  Transmission Date: 20140711
  Serious: Yes (Other)
  Sender: FDA-Public Use
  Company Number: US-ALLERGAN-1316416US

PATIENT
  Sex: Male

DRUGS (1)
  1. ALPHAGAN P [Suspect]
     Indication: PRODUCT USED FOR UNKNOWN INDICATION
     Dosage: UNK
     Dates: start: 2008

REACTIONS (1)
  - Cerebrovascular accident [Unknown]
